FAERS Safety Report 8368199-2 (Version None)
Quarter: 2012Q2

REPORT INFORMATION
  Report Type: 
  Country: None (occurrence: None)
  Receive Date: 20120517
  Receipt Date: 20120509
  Transmission Date: 20120825
  Serious: Yes (Hospitalization, Other)
  Sender: FDA-Public Use
  Company Number: US-ABBOTT-12P-163-0934296-00

PATIENT
  Sex: Female

DRUGS (6)
  1. METOPROLOL [Concomitant]
     Indication: ATRIAL FIBRILLATION
  2. HUMIRA [Suspect]
     Indication: PRODUCT USED FOR UNKNOWN INDICATION
  3. LISINOPRIL [Concomitant]
     Indication: ATRIAL FIBRILLATION
  4. MELOXICAM [Concomitant]
     Indication: ARTHRITIS
  5. COUMADIN [Concomitant]
     Indication: ATRIAL FIBRILLATION
     Dosage: MON, WED, FRI
  6. COUMADIN [Concomitant]
     Dosage: SAT, SUN, TUES, THURS

REACTIONS (6)
  - ASTHENIA [None]
  - ABASIA [None]
  - DYSPNOEA [None]
  - BONE MARROW FAILURE [None]
  - HAEMOGLOBIN DECREASED [None]
  - ANAEMIA [None]
